FAERS Safety Report 10634427 (Version 2)
Quarter: 2015Q1

REPORT INFORMATION
  Report Type: Spontaneous
  Country: US (occurrence: US)
  Receive Date: 20141205
  Receipt Date: 20150316
  Transmission Date: 20150720
  Serious: No
  Sender: FDA-Public Use
  Company Number: US-ASTELLAS-2014US018181

PATIENT
  Age: 81 Year
  Sex: Male

DRUGS (2)
  1. ETODOLAC. [Suspect]
     Active Substance: ETODOLAC
     Indication: MUSCLE STRAIN
     Dosage: UNK, UNKNOWN FREQ.
     Route: 065
  2. XTANDI [Suspect]
     Active Substance: ENZALUTAMIDE
     Indication: PROSTATE CANCER
     Dosage: 4 CAPS, ONCE DAILY
     Route: 048
     Dates: start: 20141118

REACTIONS (5)
  - Nasal disorder [Unknown]
  - Rash [Recovered/Resolved]
  - Tinnitus [Unknown]
  - Back pain [Unknown]
  - Muscle strain [Unknown]

NARRATIVE: CASE EVENT DATE: 2014
